FAERS Safety Report 5839745-5 (Version None)
Quarter: 2008Q3

REPORT INFORMATION
  Report Type: 
  Country: None (occurrence: None)
  Receive Date: 20080811
  Receipt Date: 20080729
  Transmission Date: 20090109
  Serious: Yes (Hospitalization)
  Sender: FDA-Public Use
  Company Number: FR-BRISTOL-MYERS SQUIBB COMPANY-14290845

PATIENT
  Age: 60 Year
  Sex: Female

DRUGS (10)
  1. ENDOXAN [Suspect]
     Indication: HIGH GRADE B-CELL LYMPHOMA BURKITT-LIKE LYMPHOMA STAGE IV
     Dosage: 1CYC:20FEB08 2CYC:27FEB08 3CYC:20MAR08 4CYC:28MAR08 THER DUR:5WK
     Route: 042
     Dates: start: 20080328, end: 20080328
  2. VINCRISTINE SULFATE [Suspect]
     Indication: HIGH GRADE B-CELL LYMPHOMA BURKITT-LIKE LYMPHOMA STAGE IV
     Dosage: 1CYC:20FEB08 2CYC:27FEB08 3CYC:20MAR08 4CYC:28MAR08 THER DUR: 5WK
     Route: 042
     Dates: start: 20080328, end: 20080328
  3. DOXORUBICIN HCL [Suspect]
     Indication: HIGH GRADE B-CELL LYMPHOMA BURKITT-LIKE LYMPHOMA STAGE IV
     Dosage: 1CYC:27FEB08 2CYC:28MAR08 THER DUR: 1MONTH
     Route: 042
     Dates: start: 20080328, end: 20080328
  4. MABTHERA [Suspect]
     Indication: HIGH GRADE B-CELL LYMPHOMA BURKITT-LIKE LYMPHOMA STAGE IV
     Dosage: 1CYC:27FEB08 2CYC:20MAR08 3CYC:28MAR08 THER DUR: 1MONTH
     Route: 042
     Dates: start: 20080328, end: 20080328
  5. ARACYTINE [Suspect]
     Indication: HIGH GRADE B-CELL LYMPHOMA BURKITT-LIKE LYMPHOMA STAGE IV
     Dosage: 1CYC:27FEB08 2CYC:28MAR08 THER DUR: 1 MONTH
     Route: 037
     Dates: start: 20080328, end: 20080328
  6. DEPO-MEDROL [Suspect]
     Indication: HIGH GRADE B-CELL LYMPHOMA BURKITT-LIKE LYMPHOMA STAGE IV
     Dosage: 1CYC:27FEB08 2CYC:28MAR08 THER DUR: 1 MONTH
     Route: 037
     Dates: start: 20080328, end: 20080328
  7. SEROPRAM [Concomitant]
  8. LEVOTHYROX [Concomitant]
  9. ANTIHYPERTENSIVE [Concomitant]
  10. CORTICOSTEROID [Concomitant]
     Dates: start: 20080220, end: 20080401

REACTIONS (3)
  - LUNG DISORDER [None]
  - PYREXIA [None]
  - SEPSIS [None]
